FAERS Safety Report 16384803 (Version 1)
Quarter: 2019Q2

REPORT INFORMATION
  Report Type: Spontaneous
  Country: FR (occurrence: FR)
  Receive Date: 20190603
  Receipt Date: 20190603
  Transmission Date: 20190711
  Serious: Yes (Other)
  Sender: FDA-Public Use
  Company Number: FR-MYLANLABS-2019M1051282

PATIENT
  Age: 7 Year
  Sex: Male

DRUGS (6)
  1. GAVISCON                           /00237601/ [Concomitant]
     Active Substance: ALUMINUM HYDROXIDE\MAGNESIUM CARBONATE
     Dosage: DOSAGE FORM: UNSPECIFIED
     Route: 065
  2. LIKOZAM [Concomitant]
     Dosage: DOSAGE FORM: UNSPECIFIED
     Route: 065
  3. INEXIUM                            /01479302/ [Concomitant]
     Active Substance: ESOMEPRAZOLE MAGNESIUM
     Dosage: DOSAGE FORM: UNSPECIFIED
     Route: 065
  4. DEPAKINE                           /00228501/ [Concomitant]
     Active Substance: VALPROIC ACID
     Dosage: DOSAGE FORM: UNSPECIFIED
     Route: 065
  5. ZECLAR [Suspect]
     Active Substance: CLARITHROMYCIN
     Indication: LUNG INFECTION
     Dosage: DOSAGE FORM: UNSPECIFIED
     Route: 065
  6. MOTILIUM [Suspect]
     Active Substance: DOMPERIDONE
     Indication: PRODUCT USED FOR UNKNOWN INDICATION
     Dosage: UNK
     Route: 048

REACTIONS (4)
  - Lung infection [Unknown]
  - Condition aggravated [Unknown]
  - Contraindicated product administered [Unknown]
  - Off label use [Unknown]
